FAERS Safety Report 8544133-7 (Version None)
Quarter: 2012Q3

REPORT INFORMATION
  Report Type: 
  Country: None (occurrence: None)
  Receive Date: 20120727
  Receipt Date: 20120720
  Transmission Date: 20120928
  Serious: Yes (Hospitalization)
  Sender: FDA-Public Use
  Company Number: US-JNJFOC-20120711303

PATIENT
  Sex: Female

DRUGS (3)
  1. ALL OTHER THERAPEUTICS [Concomitant]
     Indication: PREMEDICATION
     Route: 048
  2. REMICADE [Suspect]
     Indication: RHEUMATOID ARTHRITIS
     Route: 042
  3. REMICADE [Suspect]
     Route: 042
     Dates: start: 20120717

REACTIONS (5)
  - PRURITUS [None]
  - ANGIOEDEMA [None]
  - INFUSION RELATED REACTION [None]
  - DYSPEPSIA [None]
  - PARAESTHESIA ORAL [None]
